FAERS Safety Report 5659800-2 (Version None)
Quarter: 2008Q1

REPORT INFORMATION
  Report Type: 
  Country: None (occurrence: None)
  Receive Date: 20080311
  Receipt Date: 20070713
  Transmission Date: 20080703
  Serious: No
  Sender: FDA-Public Use
  Company Number: US-BAYER-200712267BCC

PATIENT
  Age: 20 Year
  Sex: Female
  Weight: 54 kg

DRUGS (2)
  1. ALEVE [Suspect]
     Indication: PAIN IN EXTREMITY
     Route: 048
     Dates: start: 20070712
  2. ALEVE [Suspect]
     Route: 048
     Dates: start: 20070713

REACTIONS (1)
  - ANXIETY [None]
